FAERS Safety Report 17565004 (Version 1)
Quarter: 2020Q1

REPORT INFORMATION
  Report Type: Spontaneous
  Country: US (occurrence: US)
  Receive Date: 20200320
  Receipt Date: 20200320
  Transmission Date: 20200409
  Serious: No
  Sender: FDA-Public Use
  Company Number: US-SA-2020SA071174

PATIENT
  Age: 53 Year
  Sex: Male

DRUGS (1)
  1. DUPIXENT [Suspect]
     Active Substance: DUPILUMAB
     Indication: DERMATITIS ATOPIC
     Dosage: 300 MG, QOW
     Route: 058
     Dates: start: 20200212

REACTIONS (7)
  - Pruritus [Unknown]
  - Product dose omission [Unknown]
  - Rash [Unknown]
  - Dermatitis atopic [Unknown]
  - Pain [Unknown]
  - Headache [Unknown]
  - Rash macular [Unknown]

NARRATIVE: CASE EVENT DATE: 20200226
